FAERS Safety Report 4602215-6 (Version None)
Quarter: 2005Q2

REPORT INFORMATION
  Report Type: 
  Country: None (occurrence: None)
  Receive Date: 20050215
  Receipt Date: 20041203
  Transmission Date: 20051028
  Serious: Yes (Hospitalization)
  Sender: FDA-Public Use
  Company Number: 2004109327

PATIENT
  Sex: Male

DRUGS (2)
  1. DAYPRO [Suspect]
     Indication: ILL-DEFINED DISORDER
     Dosage: 600 MG
  2. VICODIN [Suspect]
     Indication: ILL-DEFINED DISORDER

REACTIONS (1)
  - COMA [None]
